FAERS Safety Report 16804648 (Version 1)
Quarter: 2019Q3

REPORT INFORMATION
  Report Type: Spontaneous
  Country: DE (occurrence: DE)
  Receive Date: 20190913
  Receipt Date: 20190913
  Transmission Date: 20191005
  Serious: Yes (Death, Hospitalization)
  Sender: FDA-Public Use
  Company Number: DE-AUROBINDO-AUR-APL-2018-011033

PATIENT
  Sex: Male
  Weight: 69 kg

DRUGS (44)
  1. LOPERAMIDE [Concomitant]
     Active Substance: LOPERAMIDE
     Indication: PROPHYLAXIS
     Dosage: FREQUENCY AS REQUIRED
     Route: 048
     Dates: start: 20140714
  2. OTRIVEN [Concomitant]
     Active Substance: XYLOMETAZOLINE HYDROCHLORIDE
     Indication: SINUSITIS
  3. OXALIPLATIN. [Suspect]
     Active Substance: OXALIPLATIN
     Indication: COLORECTAL CANCER METASTATIC
     Dosage: 160 MILLIGRAM, EVERY 3 WEEK
     Route: 042
     Dates: start: 20140603, end: 20140603
  4. OXALIPLATIN. [Suspect]
     Active Substance: OXALIPLATIN
     Dosage: 150 MILLIGRAM, EVERY 3 WEEK
     Route: 042
     Dates: start: 20140121, end: 20140121
  5. XELODA [Suspect]
     Active Substance: CAPECITABINE
     Dosage: 3560 MILLIGRAM, EVERY 3 WEEK
     Route: 048
     Dates: start: 20140121, end: 20140203
  6. DEXAMETHASONE. [Concomitant]
     Active Substance: DEXAMETHASONE
     Indication: PROPHYLAXIS
     Dosage: ON DAY WHEN CHEMOTHERAPY WAS APPLICATED
     Route: 048
     Dates: start: 20140324
  7. ASPIRIN. [Concomitant]
     Active Substance: ASPIRIN
     Indication: HYPERTENSION
     Dosage: 100 MILLIGRAM, ONCE A DAY
     Route: 048
     Dates: start: 20061221
  8. TORASEMIDE [Concomitant]
     Active Substance: TORSEMIDE
     Dosage: 10 MILLIGRAM, ONCE A DAY
     Route: 048
  9. MACROGOL [Concomitant]
     Active Substance: POLYETHYLENE GLYCOLS
     Indication: PROPHYLAXIS
     Dosage: 1 DOSAGE FORM, ONCE A DAY
     Route: 048
     Dates: start: 20150831
  10. XELODA [Suspect]
     Active Substance: CAPECITABINE
     Dosage: 3560 MILLIGRAM, EVERY 3 WEEK
     Route: 048
     Dates: start: 20140304, end: 20140317
  11. MACROGOL [Concomitant]
     Active Substance: POLYETHYLENE GLYCOLS
     Indication: CONSTIPATION PROPHYLAXIS
     Dosage: MOUTH RINSING SOLUTION
     Route: 048
     Dates: start: 20140304, end: 20140304
  12. OXALIPLATIN. [Suspect]
     Active Substance: OXALIPLATIN
     Dosage: 230 MILLIGRAM, EVERY 3 WEEK
     Route: 042
     Dates: start: 20140304, end: 20140304
  13. AVASTIN [Suspect]
     Active Substance: BEVACIZUMAB
     Indication: COLORECTAL CANCER METASTATIC
     Dosage: 320 MILLIGRAM
     Route: 042
     Dates: start: 20141007
  14. IRINOTECAN [Concomitant]
     Active Substance: IRINOTECAN
     Indication: COLORECTAL CANCER
     Dosage: 320 MILLIGRAM, EVERY 2 WEEK
     Route: 042
     Dates: start: 20140826, end: 20140826
  15. TORASEMIDE [Concomitant]
     Active Substance: TORSEMIDE
     Indication: ASCITES
     Dosage: 5 MILLIGRAM, ONCE A DAY
     Route: 048
     Dates: start: 20141110
  16. GLANDOMED [Concomitant]
     Indication: PROPHYLAXIS
     Dosage: MOUTH RINSING SOLUTION
     Route: 048
     Dates: start: 20140304, end: 20140304
  17. 5-FLUOROURACIL [Concomitant]
     Active Substance: FLUOROURACIL
     Indication: COLORECTAL CANCER METASTATIC
     Dosage: 700 MILLIGRAM
     Route: 065
     Dates: start: 20141118, end: 20141202
  18. XELODA [Suspect]
     Active Substance: CAPECITABINE
     Dosage: 3560 MILLIGRAM, EVERY 3 WEEK
     Route: 048
     Dates: start: 20140325, end: 20140407
  19. AVASTIN [Suspect]
     Active Substance: BEVACIZUMAB
     Dosage: 500 MILLIGRAM 14 DAY
     Route: 042
     Dates: start: 20140325
  20. TILIDIN [Concomitant]
     Active Substance: NALOXONE HYDROCHLORIDE\TILIDINE HYDROCHLORIDE
     Indication: PAIN PROPHYLAXIS
     Dosage: 3 ONCE A DAY (50/4MG)
     Route: 065
     Dates: start: 20150831
  21. ACC ACUTE [Concomitant]
     Active Substance: ACETYLCYSTEINE
     Indication: SINUSITIS
  22. IRINOTECAN [Concomitant]
     Active Substance: IRINOTECAN
     Dosage: 330 MILLIGRAM, EVERY 2 WEEK
     Route: 042
     Dates: start: 20140722, end: 20140722
  23. OTRIVEN [Concomitant]
     Active Substance: XYLOMETAZOLINE HYDROCHLORIDE
     Indication: RHINITIS
     Dosage: 3 DOSAGE FORM, ONCE A DAY
     Route: 065
     Dates: start: 20140902, end: 20140908
  24. OXALIPLATIN. [Suspect]
     Active Substance: OXALIPLATIN
     Dosage: 160 MILLIGRAM, EVERY 3 WEEK
     Route: 042
     Dates: start: 20140513, end: 20140513
  25. XELODA [Suspect]
     Active Substance: CAPECITABINE
     Dosage: 2150 MILLIGRAM
     Route: 048
     Dates: start: 20141028
  26. XELODA [Suspect]
     Active Substance: CAPECITABINE
     Dosage: 2150 MILLIGRAM, EVERY 2 WEEK
     Route: 048
     Dates: start: 20140722
  27. AVASTIN [Suspect]
     Active Substance: BEVACIZUMAB
     Dosage: 335 MILLIGRAM, 21 DAY
     Route: 042
     Dates: start: 20140218
  28. PASPERTIN [Concomitant]
     Indication: PRODUCT USED FOR UNKNOWN INDICATION
     Dosage: 60 GTT DROPS, ONCE A DAY
     Route: 048
     Dates: start: 20140121
  29. FOLINIC ACID [Concomitant]
     Active Substance: LEUCOVORIN
     Indication: COLORECTAL CANCER METASTATIC
     Dosage: 700 MILLIGRAM, EVERY 2 WEEK
     Route: 043
     Dates: start: 20140218, end: 20141202
  30. OPIUM TINCTURE [Concomitant]
     Active Substance: MORPHINE
     Indication: PROPHYLAXIS
     Dosage: 100 MILLIGRAM
     Route: 048
     Dates: start: 20140921
  31. XELODA [Suspect]
     Active Substance: CAPECITABINE
     Dosage: 3560 MILLIGRAM, EVERY 3 WEEK
     Route: 048
     Dates: start: 20140211, end: 20140224
  32. IRINOTECAN [Concomitant]
     Active Substance: IRINOTECAN
     Dosage: 320 MILLIGRAM, EVERY 2 WEEK
     Route: 042
     Dates: start: 20140805, end: 20140805
  33. ATROPINE. [Concomitant]
     Active Substance: ATROPINE
     Indication: PROPHYLAXIS
     Dosage: ()
     Route: 042
     Dates: start: 20140722
  34. MAGNESIUM-OPTOPAN [Concomitant]
     Active Substance: MAGNESIUM OXIDE
     Indication: PROPHYLAXIS
     Dosage: 1 DOSAGE FORM, ONCE A DAY
     Route: 048
     Dates: start: 20140304, end: 20140304
  35. GRANISETRON [Concomitant]
     Active Substance: GRANISETRON
     Indication: PRODUCT USED FOR UNKNOWN INDICATION
     Dosage: 1 MILLIGRAM, ONCE A DAY
     Route: 048
     Dates: start: 20140121
  36. TINCTURA AMARA [Concomitant]
     Indication: PROPHYLAXIS
     Dosage: 100 MILLIGRAM
     Route: 048
     Dates: start: 20140921
  37. OXALIPLATIN. [Suspect]
     Active Substance: OXALIPLATIN
     Dosage: 160 MILLIGRAM, EVERY 3 WEEK
     Route: 042
     Dates: start: 20140325, end: 20140325
  38. OXALIPLATIN. [Suspect]
     Active Substance: OXALIPLATIN
     Dosage: 160 MILLIGRAM, EVERY 3 WEEK
     Route: 042
     Dates: start: 20140415, end: 20140415
  39. OXALIPLATIN. [Suspect]
     Active Substance: OXALIPLATIN
     Dosage: 150 MILLIGRAM, EVERY 3 WEEK
     Route: 042
     Dates: start: 20140211, end: 20140211
  40. XELODA [Suspect]
     Active Substance: CAPECITABINE
     Indication: COLORECTAL CANCER METASTATIC
     Dosage: 3560 MILLIGRAM, EVERY 3 WEEK
     Route: 048
     Dates: start: 20140415, end: 20140428
  41. FORTECORTIN [Concomitant]
     Active Substance: DEXAMETHASONE
     Indication: PRODUCT USED FOR UNKNOWN INDICATION
     Dosage: 1-0-1
     Route: 048
     Dates: start: 20140121
  42. ACC ACUTE [Concomitant]
     Active Substance: ACETYLCYSTEINE
     Indication: RHINITIS
     Dosage: 1UNK, ONCE A DAY
     Route: 048
     Dates: start: 20140902, end: 20140908
  43. SPIRONOLACTONE. [Concomitant]
     Active Substance: SPIRONOLACTONE
     Indication: ASCITES
     Dosage: 100 MILLIGRAM, ONCE A DAY
     Route: 048
     Dates: start: 20150831
  44. ATACAND [Concomitant]
     Active Substance: CANDESARTAN CILEXETIL
     Indication: HYPERTENSION
     Dosage: 1-0-0
     Route: 048
     Dates: start: 20061221

REACTIONS (4)
  - Hiccups [Recovered/Resolved]
  - General physical health deterioration [Fatal]
  - Gastroenteritis norovirus [Recovered/Resolved]
  - Alopecia [Not Recovered/Not Resolved]

NARRATIVE: CASE EVENT DATE: 20140327
